FAERS Safety Report 7477567-2 (Version None)
Quarter: 2011Q2

REPORT INFORMATION
  Report Type: 
  Country: None (occurrence: None)
  Receive Date: 20110513
  Receipt Date: 20110429
  Transmission Date: 20111010
  Serious: Yes (Other)
  Sender: FDA-Public Use
  Company Number: BR-JNJFOC-20110503782

PATIENT
  Sex: Male
  Weight: 93 kg

DRUGS (4)
  1. HALDOL [Suspect]
     Indication: SCHIZOPHRENIA
     Route: 030
  2. COCAINE [Suspect]
     Indication: ROUTINE HEALTH MAINTENANCE
     Route: 065
  3. PURAN T4 [Concomitant]
     Indication: HYPOTHYROIDISM
     Route: 048
  4. VALPROIC ACID [Concomitant]
     Indication: BIPOLAR DISORDER
     Route: 065

REACTIONS (3)
  - QUALITY OF LIFE DECREASED [None]
  - DEPRESSION [None]
  - SOMNOLENCE [None]
